FAERS Safety Report 4395485-3 (Version None)
Quarter: 2004Q3

REPORT INFORMATION
  Report Type: 
  Country: None (occurrence: None)
  Receive Date: 20040708
  Receipt Date: 20040625
  Transmission Date: 20050211
  Serious: Yes (Hospitalization)
  Sender: FDA-Public Use
  Company Number: 04P-163-0264849-00

PATIENT
  Age: 69 Year
  Sex: Female
  Weight: 67.1324 kg

DRUGS (2)
  1. HUMIRA [Suspect]
     Indication: RHEUMATOID ARTHRITIS
     Dosage: 40 MG, 1 IN 2 WK, SUBCUTANEOUS
     Route: 058
     Dates: start: 20030301
  2. PREDNISONE [Concomitant]

REACTIONS (3)
  - ANAEMIA [None]
  - CATHETER RELATED COMPLICATION [None]
  - COLON CANCER [None]
